FAERS Safety Report 7264404-4 (Version None)
Quarter: 2011Q1

REPORT INFORMATION
  Report Type: 
  Country: None (occurrence: None)
  Receive Date: 20110131
  Receipt Date: 20110119
  Transmission Date: 20110831
  Serious: No
  Sender: FDA-Public Use
  Company Number: US-BIOGENIDEC-2011BI002977

PATIENT
  Sex: Female

DRUGS (1)
  1. AVONEX [Suspect]
     Indication: MULTIPLE SCLEROSIS
     Route: 030
     Dates: start: 20090522

REACTIONS (5)
  - INJECTION SITE PAIN [None]
  - MEMORY IMPAIRMENT [None]
  - NAUSEA [None]
  - PAIN OF SKIN [None]
  - PYREXIA [None]
